FAERS Safety Report 4932262-6 (Version None)
Quarter: 2006Q1

REPORT INFORMATION
  Report Type: 
  Country: None (occurrence: None)
  Receive Date: 20060303
  Receipt Date: 20060119
  Transmission Date: 20060701
  Serious: Yes (Death, Hospitalization)
  Sender: FDA-Public Use
  Company Number: FR-BRISTOL-MYERS SQUIBB COMPANY-13255286

PATIENT
  Age: 53 Year
  Sex: Female
  Weight: 95 kg

DRUGS (8)
  1. ABILIFY [Suspect]
     Indication: PSYCHOTIC DISORDER
     Route: 048
     Dates: start: 20051202, end: 20051212
  2. NORSET [Concomitant]
     Indication: DEPRESSION
     Dates: start: 20051201, end: 20051213
  3. NORSET [Concomitant]
     Indication: MAJOR DEPRESSION
     Dates: start: 20051201, end: 20051213
  4. SERESTA [Concomitant]
     Indication: ANXIETY
     Dates: start: 20051016, end: 20051213
  5. TERCIAN [Concomitant]
     Indication: ANXIETY
     Dates: start: 20051016, end: 20051213
  6. TERCIAN [Concomitant]
     Indication: AGITATION
     Dates: start: 20051016, end: 20051213
  7. LEVOTHYROX [Concomitant]
     Indication: HYPOTHYROIDISM
     Dosage: DOSE VALUE:  50 UMG.  DURATION OF THERAPY:  LONG TERM
     Dates: end: 20051213
  8. MEPRONIZINE [Concomitant]
     Indication: SLEEP DISORDER
     Dosage: 1 TAB/D; DURATION OF THERAPY:  LONG TERM
     Route: 048
     Dates: end: 20051213

REACTIONS (9)
  - CARDIAC FAILURE [None]
  - COMA [None]
  - CONFUSIONAL STATE [None]
  - DEHYDRATION [None]
  - DIFFICULTY IN WALKING [None]
  - MUTISM [None]
  - PULMONARY EMBOLISM [None]
  - PYREXIA [None]
  - TACHYPNOEA [None]
